FAERS Safety Report 19636941 (Version 2)
Quarter: 2021Q3

REPORT INFORMATION
  Report Type: Report from Study
  Country: US (occurrence: US)
  Receive Date: 20210730
  Receipt Date: 20210810
  Transmission Date: 20211014
  Serious: Yes (Hospitalization)
  Sender: FDA-Public Use
  Company Number: US-PFIZER INC-202100910538

PATIENT
  Age: 18 Year
  Sex: Female

DRUGS (15)
  1. TALAZOPARIB. [Suspect]
     Active Substance: TALAZOPARIB
     Indication: EWING^S SARCOMA
     Dosage: 500 UG, 2X/DAY, ON DAY 1
     Dates: start: 20210706, end: 20210706
  2. METHADONE [Concomitant]
     Active Substance: METHADONE HYDROCHLORIDE
     Indication: PAIN
     Dosage: UNK
     Route: 048
     Dates: start: 20210621
  3. LOPERAMIDE [Concomitant]
     Active Substance: LOPERAMIDE
     Indication: PROPHYLAXIS
     Dosage: UNK
     Route: 048
     Dates: start: 20210621
  4. HYDROMORPHONE [Concomitant]
     Active Substance: HYDROMORPHONE
     Indication: PAIN
     Dosage: UNK
     Dates: start: 20210621
  5. ONDANSETRON [Concomitant]
     Active Substance: ONDANSETRON
     Indication: NAUSEA
     Dosage: UNK, AS NEEDED
     Route: 048
     Dates: start: 20210223
  6. ONDANSETRON [Concomitant]
     Active Substance: ONDANSETRON
     Indication: VOMITING
  7. ONIVYDE [Suspect]
     Active Substance: IRINOTECAN HYDROCHLORIDE
     Indication: EWING^S SARCOMA
     Dosage: 160.21 MG, 1X/DAY, ON DAY 1, 8
     Dates: start: 20210706, end: 20210713
  8. PEGFILGRASTIM [Concomitant]
     Active Substance: PEGFILGRASTIM
     Indication: PROPHYLAXIS
     Dosage: UNK
     Route: 058
     Dates: start: 20210714, end: 20210714
  9. CEFIXIME. [Concomitant]
     Active Substance: CEFIXIME
     Indication: PROPHYLAXIS
     Dosage: UNK
     Route: 048
     Dates: start: 20210706
  10. MYLANTA [CALCIUM CARBONATE] [Concomitant]
     Active Substance: CALCIUM CARBONATE
     Indication: GASTROOESOPHAGEAL REFLUX DISEASE
     Dosage: UNK
     Route: 048
     Dates: start: 20210711
  11. ALKALINE SALINE MOUTHRINSE [Concomitant]
     Indication: MUCOSAL INFLAMMATION
     Dosage: UNK
     Route: 048
     Dates: start: 20210612
  12. TALAZOPARIB. [Suspect]
     Active Substance: TALAZOPARIB
     Dosage: 1000 UG, 1X/DAY, ON DAYS 2?6
     Dates: start: 20210707, end: 20210711
  13. LORATADINE. [Concomitant]
     Active Substance: LORATADINE
     Indication: SEASONAL ALLERGY
     Dosage: UNK
     Route: 048
     Dates: start: 20210713
  14. DIPHENHYDRAMINE. [Concomitant]
     Active Substance: DIPHENHYDRAMINE
     Indication: NAUSEA
     Dosage: UNK, AS NEEDED
     Route: 048
     Dates: start: 20210422
  15. DIPHENHYDRAMINE. [Concomitant]
     Active Substance: DIPHENHYDRAMINE
     Indication: VOMITING

REACTIONS (3)
  - Odynophagia [Unknown]
  - Weight decreased [Unknown]
  - Gastrooesophageal reflux disease [Unknown]
